FAERS Safety Report 5884833-0 (Version None)
Quarter: 2008Q3

REPORT INFORMATION
  Report Type: 
  Country: None (occurrence: None)
  Receive Date: 20080916
  Receipt Date: 20080908
  Transmission Date: 20090109
  Serious: Yes (Other)
  Sender: FDA-Public Use
  Company Number: US-BAYER-200833002NA

PATIENT
  Age: 49 Year
  Sex: Female

DRUGS (1)
  1. YASMIN [Suspect]
     Indication: ENDOMETRIOSIS
     Route: 048
     Dates: start: 20000101

REACTIONS (2)
  - BIOPSY BREAST ABNORMAL [None]
  - BREAST CALCIFICATIONS [None]
